FAERS Safety Report 5912136-4 (Version None)
Quarter: 2008Q4

REPORT INFORMATION
  Report Type: 
  Country: None (occurrence: None)
  Receive Date: 20081008
  Receipt Date: 20081003
  Transmission Date: 20090506
  Serious: Yes (Hospitalization)
  Sender: FDA-Public Use
  Company Number: US-RB-002491-08

PATIENT
  Age: 22 Year
  Sex: Male

DRUGS (6)
  1. SUBOXONE [Suspect]
     Route: 060
     Dates: start: 20080414, end: 20080701
  2. NAPROXEN [Concomitant]
     Indication: DRUG USE FOR UNKNOWN INDICATION
  3. NEXIUM [Concomitant]
     Indication: DRUG USE FOR UNKNOWN INDICATION
     Dates: start: 20080707
  4. KLONOPIN [Concomitant]
     Indication: ANXIETY
     Route: 065
  5. COCAINE [Suspect]
     Indication: DRUG USE FOR UNKNOWN INDICATION
     Dosage: UNKNOWN AMOUNT SWALLOWED
     Route: 048
     Dates: start: 20080701
  6. PHENERGAN HCL [Concomitant]
     Indication: NAUSEA
     Dosage: 25MG EVERY 4 HOURS AS NEEDED
     Route: 065
     Dates: start: 20080707

REACTIONS (2)
  - ENDOCARDITIS [None]
  - RENAL INFARCT [None]
